FAERS Safety Report 8576933-1 (Version None)
Quarter: 2012Q2

REPORT INFORMATION
  Report Type: 
  Country: None (occurrence: None)
  Receive Date: 20120423
  Receipt Date: 20091216
  Transmission Date: 20120825
  Serious: Yes (Hospitalization, Other)
  Sender: FDA-Public Use
  Company Number: PHEH2009US11445

PATIENT
  Age: 62 Year
  Sex: Female

DRUGS (1)
  1. EXJADE [Suspect]
     Indication: LYMPHATIC DISORDER
     Dosage: 500 MG, BID, ORAL
     Route: 048
     Dates: start: 20090905

REACTIONS (1)
  - PYREXIA [None]
